FAERS Safety Report 21960123 (Version 2)
Quarter: 2023Q1

REPORT INFORMATION
  Report Type: Report from Study
  Country: IN (occurrence: IN)
  Receive Date: 20230207
  Receipt Date: 20230318
  Transmission Date: 20230418
  Serious: Yes (Other)
  Sender: FDA-Public Use
  Company Number: IN-002147023-NVSC2023IN022244

PATIENT
  Age: 61 Year
  Sex: Female

DRUGS (2)
  1. ELTROMBOPAG OLAMINE [Suspect]
     Active Substance: ELTROMBOPAG OLAMINE
     Indication: Aplastic anaemia
     Dosage: 75 MG, QD
     Route: 065
     Dates: start: 20230117
  2. ELTROMBOPAG OLAMINE [Suspect]
     Active Substance: ELTROMBOPAG OLAMINE
     Dosage: 75 MG, QD
     Route: 065
     Dates: start: 20230217

REACTIONS (3)
  - Decreased appetite [Unknown]
  - Hypertrichosis [Unknown]
  - Jaundice [Unknown]

NARRATIVE: CASE EVENT DATE: 20230117
